FAERS Safety Report 20749057 (Version 1)
Quarter: 2022Q2

REPORT INFORMATION
  Report Type: Spontaneous
  Country: US (occurrence: None)
  Receive Date: 20220425
  Receipt Date: 20220425
  Transmission Date: 20220721
  Serious: Yes (Life-Threatening, Hospitalization)
  Sender: FDA-Public Use
  Company Number: None

PATIENT
  Age: 70 Year
  Sex: Female

DRUGS (1)
  1. REMICADE [Suspect]
     Active Substance: INFLIXIMAB
     Indication: Rheumatoid arthritis
     Route: 042
     Dates: start: 202103

REACTIONS (7)
  - Nephrolithiasis [None]
  - Abscess [None]
  - Sepsis [None]
  - Infection [None]
  - Therapy interrupted [None]
  - Symptom recurrence [None]
  - Pain [None]

NARRATIVE: CASE EVENT DATE: 20220109
